FAERS Safety Report 8936180 (Version 1)
Quarter: 2012Q4

REPORT INFORMATION
  Report Type: 
  Country: UA (occurrence: UA)
  Receive Date: 20121130
  Receipt Date: 20121130
  Transmission Date: 20130627
  Serious: Yes (Other)
  Sender: FDA-Public Use
  Company Number: UA-009507513-1211UKR011893

PATIENT
  Age: 30 Year
  Sex: Female

DRUGS (3)
  1. SINGULAIR [Suspect]
     Indication: ASTHMA
  2. SERETIDE [Suspect]
     Indication: ASTHMA
  3. SYMBICORT [Suspect]
     Indication: ASTHMA

REACTIONS (6)
  - Allergic granulomatous angiitis [Unknown]
  - Red blood cell sedimentation rate increased [Unknown]
  - Nasal congestion [Unknown]
  - Eosinophilia [Unknown]
  - Myalgia [Unknown]
  - Paraesthesia [Unknown]
